FAERS Safety Report 12191262 (Version 1)
Quarter: 2016Q1

REPORT INFORMATION
  Report Type: Spontaneous
  Country: US (occurrence: US)
  Receive Date: 20160318
  Receipt Date: 20160318
  Transmission Date: 20160526
  Serious: No
  Sender: FDA-Public Use
  Company Number: US-HORIZON-PEN-0109-2016

PATIENT
  Age: 74 Year
  Sex: Female

DRUGS (17)
  1. VITAMIN D [Concomitant]
     Active Substance: CHOLECALCIFEROL
  2. SIMVASTATIN. [Concomitant]
     Active Substance: SIMVASTATIN
  3. PENNSAID [Suspect]
     Active Substance: DICLOFENAC SODIUM
     Indication: OSTEOARTHRITIS
     Dosage: ONCE DAILY
  4. ESTRADIOL. [Concomitant]
     Active Substance: ESTRADIOL
  5. NORCO [Concomitant]
     Active Substance: ACETAMINOPHEN\HYDROCODONE BITARTRATE
  6. ZANTAC [Concomitant]
     Active Substance: RANITIDINE HYDROCHLORIDE
  7. CYMBALTA [Concomitant]
     Active Substance: DULOXETINE HYDROCHLORIDE
  8. FOLIC ACID. [Concomitant]
     Active Substance: FOLIC ACID
  9. MAGNESIUM [Concomitant]
     Active Substance: MAGNESIUM
  10. DITROPAN [Concomitant]
     Active Substance: OXYBUTYNIN CHLORIDE
  11. ALPRAZOLAM. [Concomitant]
     Active Substance: ALPRAZOLAM
  12. CELEBREX [Concomitant]
     Active Substance: CELECOXIB
  13. FLONASE [Concomitant]
     Active Substance: FLUTICASONE PROPIONATE
  14. LASIX [Concomitant]
     Active Substance: FUROSEMIDE
  15. METOPROLOL. [Concomitant]
     Active Substance: METOPROLOL
  16. PROVENTIL [Concomitant]
     Active Substance: ALBUTEROL
  17. SYNTHROID [Concomitant]
     Active Substance: LEVOTHYROXINE SODIUM

REACTIONS (2)
  - Therapy cessation [Unknown]
  - Off label use [Unknown]

NARRATIVE: CASE EVENT DATE: 201602
